FAERS Safety Report 8511389-6 (Version None)
Quarter: 2012Q3

REPORT INFORMATION
  Report Type: 
  Country: None (occurrence: None)
  Receive Date: 20120716
  Receipt Date: 20120709
  Transmission Date: 20120928
  Serious: Yes (Other)
  Sender: FDA-Public Use
  Company Number: SE-UCBSA-061404

PATIENT
  Age: 47 Year
  Sex: Male

DRUGS (2)
  1. PREDNISOLON ALTERNOVA [Concomitant]
  2. CIMZIA [Suspect]
     Indication: SPONDYLITIS
     Dosage: DOSE: 200 MG
     Dates: start: 20110913, end: 20120315

REACTIONS (1)
  - GUTTATE PSORIASIS [None]
